FAERS Safety Report 5420267-0 (Version None)
Quarter: 2007Q3

REPORT INFORMATION
  Report Type: 
  Country: None (occurrence: None)
  Receive Date: 20070718
  Receipt Date: 20060816
  Transmission Date: 20080115
  Serious: Yes (Hospitalization, Disabling, Other)
  Sender: FDA-Public Use
  Company Number: 2006080470

PATIENT
  Age: 44 Year
  Sex: Male
  Weight: 183.7068 kg

DRUGS (1)
  1. CELEBREX [Suspect]
     Indication: ARTHRITIS
     Dosage: (200 MG,)
     Dates: start: 20011102, end: 20050110

REACTIONS (1)
  - DEEP VEIN THROMBOSIS [None]
